FAERS Safety Report 8103621-8 (Version None)
Quarter: 2012Q1

REPORT INFORMATION
  Report Type: 
  Country: None (occurrence: None)
  Receive Date: 20120201
  Receipt Date: 20120127
  Transmission Date: 20120608
  Serious: Yes (Other)
  Sender: FDA-Public Use
  Company Number: US-PFIZER INC-2008074667

PATIENT
  Sex: Male
  Weight: 96 kg

DRUGS (12)
  1. NITROSTAT [Suspect]
     Dosage: UNK
  2. AMARYL [Concomitant]
  3. ASPIRIN [Concomitant]
  4. AVAPRO [Concomitant]
  5. METFORMIN [Concomitant]
     Indication: DIABETES MELLITUS
  6. ALDACTONE [Suspect]
     Dosage: UNK
  7. CADUET [Suspect]
     Dosage: UNK
  8. ATENOLOL [Concomitant]
     Indication: HYPERTENSION
  9. XANAX [Suspect]
     Dosage: UNK
  10. COUMADIN [Concomitant]
  11. LIPITOR [Suspect]
     Indication: BLOOD CHOLESTEROL INCREASED
     Dosage: 40 MG, UNK
  12. PROTONIX [Suspect]
     Dosage: UNK

REACTIONS (10)
  - CHEST DISCOMFORT [None]
  - LIMB DISCOMFORT [None]
  - DIABETES MELLITUS [None]
  - POSTOPERATIVE THORACIC PROCEDURE COMPLICATION [None]
  - STRESS [None]
  - FATIGUE [None]
  - OBESITY [None]
  - ATRIOVENTRICULAR BLOCK [None]
  - CORONARY ARTERY BYPASS [None]
  - SOMNOLENCE [None]
